FAERS Safety Report 18625635 (Version 1)
Quarter: 2020Q4

REPORT INFORMATION
  Report Type: Spontaneous
  Country: RO (occurrence: RO)
  Receive Date: 20201217
  Receipt Date: 20201217
  Transmission Date: 20210114
  Serious: Yes (Death, Other)
  Sender: FDA-Public Use
  Company Number: RO-SUN PHARMACEUTICAL INDUSTRIES LTD-2020RR-267632

PATIENT
  Age: 46 Year
  Sex: Male

DRUGS (7)
  1. VINCRISTINE [Suspect]
     Active Substance: VINCRISTINE
     Indication: CHRONIC MYELOID LEUKAEMIA
     Dosage: FIRRST CYCLE: 2 MILLIGRAM ON DAYS 1, 8, 15 AND 22
     Route: 065
  2. IMATINIB. [Suspect]
     Active Substance: IMATINIB MESYLATE
     Indication: PRODUCT USED FOR UNKNOWN INDICATION
     Dosage: 800 MILLIGRAM, DAILY FROM DAY 1 TO DAY 28
     Route: 065
  3. CYTOSAR [Concomitant]
     Active Substance: CYTARABINE
     Indication: CHRONIC MYELOID LEUKAEMIA
     Dosage: SECOND CYCLE: 5.700 MILLIGRAM, BID ON DAYS 2 AND 3
     Route: 065
  4. IMATINIB. [Suspect]
     Active Substance: IMATINIB MESYLATE
     Dosage: 800 MILLIGRAM, DAILY FROM DAY
     Route: 065
  5. METHOTREXATE. [Concomitant]
     Active Substance: METHOTREXATE
     Indication: CHRONIC MYELOID LEUKAEMIA
     Dosage: SECOND CYCLE:1900 MILLIGRAM ON DAY 1
     Route: 065
  6. DEXAMETHASONE. [Suspect]
     Active Substance: DEXAMETHASONE
     Indication: CHRONIC MYELOID LEUKAEMIA
     Dosage: FIRST CYCLE: 40 MG ON DAYS 1-2, 8-9, 15-16 AND 22-23
     Route: 065
  7. CALCIUM FOLINAT [Concomitant]
     Active Substance: LEUCOVORIN CALCIUM
     Indication: PRODUCT USED FOR UNKNOWN INDICATION
     Dosage: UNK
     Route: 065

REACTIONS (2)
  - Acinetobacter infection [Fatal]
  - Thrombocytopenia [Not Recovered/Not Resolved]
